FAERS Safety Report 4441219-3 (Version None)
Quarter: 2004Q3

REPORT INFORMATION
  Report Type: 
  Country: None (occurrence: None)
  Receive Date: 20040728
  Receipt Date: 20040407
  Transmission Date: 20050211
  Serious: No
  Sender: FDA-Public Use
  Company Number: USA040463736

PATIENT
  Age: 28 Year
  Sex: Male
  Weight: 74 kg

DRUGS (2)
  1. STRATTERA [Suspect]
     Indication: ATTENTION DEFICIT/HYPERACTIVITY DISORDER
     Dosage: 40 MG IN THE MORNING
     Dates: start: 20040331, end: 20040401
  2. PROPECIA [Concomitant]

REACTIONS (2)
  - DYSURIA [None]
  - URINARY HESITATION [None]
